FAERS Safety Report 24286264 (Version 1)
Quarter: 2024Q3

REPORT INFORMATION
  Report Type: Spontaneous
  Country: PL (occurrence: PL)
  Receive Date: 20240905
  Receipt Date: 20240905
  Transmission Date: 20241017
  Serious: Yes (Other)
  Sender: AMGEN
  Company Number: PL-AMGEN-POLSP2024174635

PATIENT
  Age: 61 Year
  Sex: Male

DRUGS (4)
  1. VECTIBIX [Suspect]
     Active Substance: PANITUMUMAB
     Indication: Colon cancer metastatic
     Dosage: UNK
     Route: 065
     Dates: start: 202112, end: 202404
  2. LEUCOVORIN [Suspect]
     Active Substance: LEUCOVORIN\LEUCOVORIN CALCIUM
     Indication: Colon cancer metastatic
     Dosage: UNK
     Route: 065
     Dates: start: 202112
  3. FLUOROURACIL [Suspect]
     Active Substance: FLUOROURACIL
     Indication: Colon cancer metastatic
     Dosage: UNK
     Route: 065
     Dates: start: 202112
  4. IRINOTECAN [Suspect]
     Active Substance: IRINOTECAN
     Indication: Colon cancer metastatic
     Dosage: UNK
     Route: 065
     Dates: start: 202112

REACTIONS (6)
  - Leukopenia [Unknown]
  - Cutaneous symptom [Unknown]
  - Hypomagnesaemia [Unknown]
  - Conjunctivitis [Unknown]
  - Therapy partial responder [Recovered/Resolved]
  - Off label use [Unknown]

NARRATIVE: CASE EVENT DATE: 20220701
